FAERS Safety Report 8607739-2 (Version None)
Quarter: 2012Q3

REPORT INFORMATION
  Report Type: 
  Country: None (occurrence: None)
  Receive Date: 20120821
  Receipt Date: 20120814
  Transmission Date: 20120928
  Serious: Yes (Hospitalization)
  Sender: FDA-Public Use
  Company Number: PHEH2012US014685

PATIENT
  Sex: Female

DRUGS (6)
  1. SIMVASTATIN [Concomitant]
  2. TEGRETOL-XR [Suspect]
     Dosage: 1200 MG, UNK
  3. KEPPRA [Suspect]
     Indication: MIGRAINE
     Dosage: 1000 MG, UNK
  4. TEGRETOL-XR [Suspect]
     Dosage: 1400 MG (200MG 7 TIMES PER DAY)
  5. CARBAMAZEPINE [Suspect]
  6. KEPPRA [Suspect]
     Dosage: 200 MG, UNK

REACTIONS (8)
  - OVERDOSE [None]
  - DRUG INEFFECTIVE [None]
  - DRUG LEVEL DECREASED [None]
  - MIGRAINE [None]
  - MALAISE [None]
  - INTRAOCULAR PRESSURE INCREASED [None]
  - CONVULSION [None]
  - DEPRESSION [None]
